FAERS Safety Report 7187308-4 (Version None)
Quarter: 2010Q4

REPORT INFORMATION
  Report Type: 
  Country: None (occurrence: None)
  Receive Date: 20101222
  Receipt Date: 20101214
  Transmission Date: 20110411
  Serious: Yes (Hospitalization)
  Sender: FDA-Public Use
  Company Number: JP-ELI_LILLY_AND_COMPANY-JP201012003860

PATIENT
  Age: 65 Year
  Sex: Female

DRUGS (3)
  1. ALIMTA [Suspect]
     Indication: NON-SMALL CELL LUNG CANCER
     Dosage: 500 MG/M2, UNK
     Route: 042
     Dates: start: 20101208, end: 20101208
  2. KYTRIL [Concomitant]
     Route: 065
     Dates: start: 20101208, end: 20101208
  3. DECADRON /NET/ [Concomitant]
     Dosage: 6.6 MG, UNK
     Route: 065
     Dates: start: 20101208, end: 20101208

REACTIONS (1)
  - ANAPHYLACTIC REACTION [None]
